FAERS Safety Report 13622845 (Version 2)
Quarter: 2017Q3

REPORT INFORMATION
  Report Type: Spontaneous
  Country: CR (occurrence: CR)
  Receive Date: 20170607
  Receipt Date: 20170706
  Transmission Date: 20171127
  Serious: Yes (Other)
  Sender: FDA-Public Use
  Company Number: PHHY2017CR079521

PATIENT
  Age: 72 Year
  Sex: Male

DRUGS (1)
  1. CAPECITABINE SANDOZ [Suspect]
     Active Substance: CAPECITABINE
     Indication: PRODUCT USED FOR UNKNOWN INDICATION
     Route: 065

REACTIONS (6)
  - Malignant neoplasm of ampulla of Vater [Unknown]
  - Abdominal pain upper [Unknown]
  - Metastases to lung [Unknown]
  - Metastases to liver [Unknown]
  - Abdominal pain [Unknown]
  - Fatigue [Unknown]
